FAERS Safety Report 10779416 (Version 2)
Quarter: 2015Q2

REPORT INFORMATION
  Report Type: Spontaneous
  Country: JP (occurrence: JP)
  Receive Date: 20150210
  Receipt Date: 20150429
  Transmission Date: 20150821
  Serious: Yes (Other)
  Sender: FDA-Public Use
  Company Number: JP-TEVA-539607ISR

PATIENT
  Age: 8 Decade
  Sex: Male

DRUGS (2)
  1. E-FEN [Suspect]
     Active Substance: FENTANYL CITRATE
     Route: 002
  2. FENTANYL TRANSMUCOSAL PACH [Concomitant]
     Route: 062

REACTIONS (2)
  - Pain [Unknown]
  - Depressed level of consciousness [Unknown]
